FAERS Safety Report 8615549-5 (Version None)
Quarter: 2012Q3

REPORT INFORMATION
  Report Type: 
  Country: None (occurrence: None)
  Receive Date: 20120823
  Receipt Date: 20120816
  Transmission Date: 20120928
  Serious: Yes (Life-Threatening, Hospitalization)
  Sender: FDA-Public Use
  Company Number: JP-CELGENEUS-087-CCAZA-11090656

PATIENT
  Age: 79 Year
  Sex: Male
  Weight: 65 kg

DRUGS (17)
  1. AZACITIDINE [Suspect]
     Dosage: 75 MILLIGRAM/SQ. METER
     Route: 041
     Dates: start: 20110824, end: 20110826
  2. AZACITIDINE [Suspect]
     Dosage: 37.5 MILLIGRAM/SQ. METER
     Route: 041
  3. OMEPRAZOLE [Concomitant]
     Route: 065
  4. LEVOTHYROXINE SODIUM [Concomitant]
     Route: 065
     Dates: start: 20110728
  5. MAGNESIUM OXIDE [Concomitant]
     Route: 065
  6. CALBLOCK [Concomitant]
     Route: 065
  7. POLYMYXIN B SULFATE [Concomitant]
     Route: 065
     Dates: start: 20110824
  8. CONIEL [Concomitant]
     Route: 065
  9. DOXAZOSIN MESYLATE [Concomitant]
     Route: 065
  10. CANDESARTAN CILEXETIL [Concomitant]
     Route: 065
  11. OMEGACIN [Concomitant]
     Route: 065
     Dates: start: 20110912, end: 20110920
  12. ISOSORBIDE MONONITRATE [Concomitant]
     Route: 065
  13. PYRIDOXAL [Concomitant]
     Route: 065
     Dates: start: 20110729
  14. ZOSYN [Concomitant]
     Route: 065
     Dates: start: 20110830, end: 20110911
  15. CEFAZOLIN SODIUM [Concomitant]
     Route: 065
     Dates: start: 20110824
  16. ASPIRIN [Concomitant]
     Route: 065
  17. ALLOPURINOL [Concomitant]
     Route: 065

REACTIONS (1)
  - DYSPNOEA [None]
